FAERS Safety Report 11467813 (Version 1)
Quarter: 2015Q3

REPORT INFORMATION
  Report Type: Spontaneous
  Country: US (occurrence: None)
  Receive Date: 20150904
  Receipt Date: 20150904
  Transmission Date: 20151125
  Serious: No
  Sender: FDA-Public Use
  Company Number: None

PATIENT
  Age: 61 Year
  Sex: Female

DRUGS (3)
  1. AMOXILLIN [Suspect]
     Active Substance: AMOXICILLIN
     Indication: INFECTED BUNION
     Dates: start: 20131222, end: 20140104
  2. CEPHALEXIN. [Suspect]
     Active Substance: CEPHALEXIN
     Indication: INFECTED BUNION
     Dates: start: 20131218, end: 20131221
  3. DICLOFENAC [Concomitant]
     Active Substance: DICLOFENAC

REACTIONS (8)
  - Alanine aminotransferase increased [None]
  - Antimitochondrial antibody positive [None]
  - Blood alkaline phosphatase increased [None]
  - Infected bunion [None]
  - Hepatic steatosis [None]
  - Aspartate aminotransferase increased [None]
  - Blood bilirubin increased [None]
  - Drug-induced liver injury [None]

NARRATIVE: CASE EVENT DATE: 20140210
